FAERS Safety Report 5634578-7 (Version None)
Quarter: 2008Q1

REPORT INFORMATION
  Report Type: 
  Country: None (occurrence: None)
  Receive Date: 20080222
  Receipt Date: 20080208
  Transmission Date: 20080703
  Serious: Yes (Hospitalization)
  Sender: FDA-Public Use
  Company Number: GB-ROCHE-546591

PATIENT
  Age: 47 Year
  Sex: Female
  Weight: 116 kg

DRUGS (13)
  1. ORLISTAT [Suspect]
     Indication: OBESITY
     Route: 048
     Dates: start: 20070520
  2. NICORANDIL [Concomitant]
     Indication: ANGINA PECTORIS
     Dosage: REPORTED AS: LONG TERM- TREATMENT.
     Route: 048
  3. SIMVASTATIN [Concomitant]
     Dosage: REPORTED AS: LONG TERM.
     Route: 048
  4. PIOGLITAZONE [Concomitant]
     Dosage: REPORTED AS: LONG TERM.
     Route: 048
  5. METFORMIN HCL [Concomitant]
     Dosage: REPORTED AS: LONG TERM.
     Route: 048
  6. CANDESARTAN [Concomitant]
     Dosage: REPORTED AS: LONG TERM. DRUG REPORTED AS CANDESARTEN.
     Route: 048
  7. FUROSEMIDE [Concomitant]
     Indication: DRUG USE FOR UNKNOWN INDICATION
     Dosage: REPORTED AS: LONG TERM. INDICATION REPORTED AS ^WATER TABLETS^.
     Route: 048
  8. ASPIRIN [Concomitant]
     Dosage: REPORTED AS: LONG TERM.
     Route: 048
  9. ADIZEM [Concomitant]
     Dosage: REPORTED AS: LONG TERM.
     Route: 048
  10. LEVOTHYROXINE SODIUM [Concomitant]
     Dosage: REPORTED AS: LONG TERM.
     Route: 048
  11. HUMALOG [Concomitant]
     Dosage: DATE STARTED: LONG TERM.
  12. ALBUTEROL [Concomitant]
     Indication: ASTHMA
     Dosage: REPORTED AS: LONG TERM.
     Route: 055
  13. SERETIDE [Concomitant]
     Indication: ASTHMA
     Dosage: DATE STARTED: LONG TERM.
     Route: 055

REACTIONS (2)
  - CHEST PAIN [None]
  - PULMONARY EMBOLISM [None]
